FAERS Safety Report 5259546-9 (Version None)
Quarter: 2007Q1

REPORT INFORMATION
  Report Type: 
  Country: None (occurrence: None)
  Receive Date: 20070306
  Receipt Date: 20070223
  Transmission Date: 20070707
  Serious: Yes (Hospitalization)
  Sender: FDA-Public Use
  Company Number: 237192

PATIENT
  Age: 70 Year
  Sex: Male
  Weight: 78 kg

DRUGS (13)
  1. AVASTIN [Suspect]
     Indication: COLORECTAL CANCER METASTATIC
     Dosage: 5T MG/KG, Q2W, INTRAVENOUS
     Route: 042
     Dates: start: 20060816
  2. OXALIPLATIN [Suspect]
     Indication: COLORECTAL CANCER METASTATIC
     Dosage: 85 MG/M2, Q2W, INTRAVENOUS
     Route: 042
     Dates: start: 20060816
  3. FLUOROURACIL [Suspect]
     Indication: COLORECTAL CANCER METASTATIC
     Dosage: SEE IMAGE
     Route: 042
     Dates: start: 20060816
  4. LEUCOVORIN CALCIUM [Suspect]
     Indication: COLORECTAL CANCER METASTATIC
     Dosage: 400 MG/M2, Q2W, INTRAVENOUS
     Route: 042
     Dates: start: 20060816
  5. LIPITOR [Concomitant]
  6. NIASPAN [Concomitant]
  7. QUINAPRIL [Concomitant]
  8. COREG [Concomitant]
  9. HEMOCYTE (FERROUS FUMARATE) [Concomitant]
  10. PHENERGAN (PROMETHAZINE HYDROCHLORIDE) [Concomitant]
  11. ALBUTEROL (ALBUTEROL /ALBUTEROL SULFATE) [Concomitant]
  12. XOPENEX [Concomitant]
  13. FLONASE [Concomitant]

REACTIONS (3)
  - DYSPNOEA [None]
  - TRACHEAL DISORDER [None]
  - TRACHEAL HAEMORRHAGE [None]
